FAERS Safety Report 5144286-7 (Version None)
Quarter: 2006Q4

REPORT INFORMATION
  Report Type: 
  Country: None (occurrence: None)
  Receive Date: 20061106
  Receipt Date: 20060908
  Transmission Date: 20070319
  Serious: Yes (Death)
  Sender: FDA-Public Use
  Company Number: US-ROCHE-462803

PATIENT
  Age: 17 Year
  Sex: Male
  Weight: 66.2 kg

DRUGS (4)
  1. ACCUTANE [Suspect]
     Indication: ACNE
     Route: 048
     Dates: start: 20060715, end: 20060815
  2. ACCUTANE [Suspect]
     Route: 048
     Dates: start: 20060415, end: 20060615
  3. ACCUTANE [Suspect]
     Route: 048
     Dates: start: 20060315, end: 20060415
  4. ACCUTANE [Suspect]
     Route: 048
     Dates: start: 20060213, end: 20060315

REACTIONS (2)
  - ASPHYXIA [None]
  - COMPLETED SUICIDE [None]
